FAERS Safety Report 24897531 (Version 1)
Quarter: 2025Q1

REPORT INFORMATION
  Report Type: Spontaneous
  Country: CN (occurrence: CN)
  Receive Date: 20250129
  Receipt Date: 20250129
  Transmission Date: 20250409
  Serious: Yes (Other)
  Sender: ORGANON
  Company Number: CN-ORGANON-O2501CHN002843

PATIENT
  Age: 86 Year
  Sex: Male

DRUGS (1)
  1. SINGULAIR [Suspect]
     Active Substance: MONTELUKAST SODIUM
     Indication: Obstructive airways disorder
     Dosage: 10 MILLIGRAM, QD
     Route: 048
     Dates: start: 20250119, end: 20250121

REACTIONS (4)
  - Altered state of consciousness [Recovering/Resolving]
  - Disorganised speech [Recovering/Resolving]
  - Insomnia [Recovering/Resolving]
  - Product use in unapproved indication [Unknown]

NARRATIVE: CASE EVENT DATE: 20250119
